FAERS Safety Report 9256808 (Version 1)
Quarter: 2013Q2

REPORT INFORMATION
  Report Type: Spontaneous
  Country: US (occurrence: None)
  Receive Date: 20130423
  Receipt Date: 20130423
  Transmission Date: 20140414
  Serious: Yes (Other)
  Sender: FDA-Public Use
  Company Number: None

PATIENT
  Age: 64 Year
  Sex: Male
  Weight: 146.51 kg

DRUGS (2)
  1. AVAPRO [Suspect]
     Indication: HYPERTENSION
     Dosage: 150MG  ONCE A  DAY PO
     Route: 048
     Dates: start: 20130410, end: 20130413
  2. AMARYL [Suspect]
     Indication: DIABETES MELLITUS
     Dosage: 2MG  TWO TWICE DAILY PO
     Route: 048
     Dates: start: 20130410, end: 20130413

REACTIONS (3)
  - Myalgia [None]
  - Insomnia [None]
  - Abdominal discomfort [None]
